FAERS Safety Report 19154365 (Version 1)
Quarter: 2021Q2

REPORT INFORMATION
  Report Type: Report from Study
  Country: US (occurrence: US)
  Receive Date: 20210419
  Receipt Date: 20210419
  Transmission Date: 20210717
  Serious: Yes (Other)
  Sender: FDA-Public Use
  Company Number: US-OTSUKA-2021_012874

PATIENT
  Age: 69 Year
  Sex: Female

DRUGS (2)
  1. ASTX727 [Suspect]
     Active Substance: CEDAZURIDINE\DECITABINE
     Indication: CHRONIC MYELOMONOCYTIC LEUKAEMIA
     Dosage: 135 MG, QD
     Route: 048
     Dates: start: 20201022
  2. ONDANSETRON [Concomitant]
     Active Substance: ONDANSETRON
     Indication: PRODUCT USED FOR UNKNOWN INDICATION
     Dosage: UNK
     Route: 065

REACTIONS (2)
  - Intentional dose omission [Recovered/Resolved]
  - Lumbar puncture [Recovered/Resolved]

NARRATIVE: CASE EVENT DATE: 20210408
